FAERS Safety Report 10950269 (Version 1)
Quarter: 2015Q1

REPORT INFORMATION
  Report Type: Spontaneous
  Country: FI (occurrence: FI)
  Receive Date: 20150324
  Receipt Date: 20150324
  Transmission Date: 20150721
  Serious: Yes (Hospitalization, Other)
  Sender: FDA-Public Use
  Company Number: FI-ASTRAZENECA-2015SE25566

PATIENT
  Sex: Male

DRUGS (9)
  1. BYETTA [Suspect]
     Active Substance: EXENATIDE
     Indication: TYPE 2 DIABETES MELLITUS
  2. BYETTA [Suspect]
     Active Substance: EXENATIDE
     Indication: TYPE 2 DIABETES MELLITUS
  3. INSULIN [Concomitant]
     Active Substance: INSULIN NOS
  4. INSULIN [Concomitant]
     Active Substance: INSULIN NOS
  5. BYETTA [Suspect]
     Active Substance: EXENATIDE
     Indication: TYPE 2 DIABETES MELLITUS
     Dates: start: 20110822
  6. UNSPECIFIED BLOOD PRESSURE MEDICATION [Concomitant]
  7. BYETTA [Suspect]
     Active Substance: EXENATIDE
     Indication: TYPE 2 DIABETES MELLITUS
  8. UNSPECIFIED HEART MEDICATION [Concomitant]
  9. INSULIN DETEMIR [Concomitant]
     Active Substance: INSULIN DETEMIR

REACTIONS (19)
  - Arrhythmia [Recovering/Resolving]
  - Blood glucose fluctuation [Recovering/Resolving]
  - Bowel movement irregularity [Recovering/Resolving]
  - Dyspepsia [Recovering/Resolving]
  - Dizziness [Recovering/Resolving]
  - Laryngeal oedema [Recovering/Resolving]
  - Oropharyngeal pain [Recovering/Resolving]
  - Cough [Recovering/Resolving]
  - Abdominal pain upper [Recovering/Resolving]
  - Abdominal discomfort [Recovering/Resolving]
  - Cardiac disorder [Recovering/Resolving]
  - Dry mouth [Recovering/Resolving]
  - Cholecystitis infective [Recovering/Resolving]
  - Nausea [Recovering/Resolving]
  - Infection [Recovering/Resolving]
  - Abdominal distension [Recovering/Resolving]
  - Weight decreased [Not Recovered/Not Resolved]
  - Blood glucose increased [Recovering/Resolving]
  - Influenza [Recovering/Resolving]
